FAERS Safety Report 16247408 (Version 2)
Quarter: 2019Q2

REPORT INFORMATION
  Report Type: Spontaneous
  Country: US (occurrence: US)
  Receive Date: 20190428
  Receipt Date: 20190520
  Transmission Date: 20190711
  Serious: No
  Sender: FDA-Public Use
  Company Number: US-009507513-1904USA012310

PATIENT
  Sex: Female

DRUGS (1)
  1. KEYTRUDA [Suspect]
     Active Substance: PEMBROLIZUMAB
     Dosage: UNK
     Dates: end: 201812

REACTIONS (5)
  - Rash [Unknown]
  - Fatigue [Unknown]
  - Dizziness [Unknown]
  - Hypophagia [Unknown]
  - Acne [Unknown]
